FAERS Safety Report 4520570-2 (Version None)
Quarter: 2004Q4

REPORT INFORMATION
  Report Type: 
  Country: None (occurrence: None)
  Receive Date: 20041203
  Receipt Date: 20041123
  Transmission Date: 20050328
  Serious: Yes (Hospitalization, Other)
  Sender: FDA-Public Use
  Company Number: 2004097444

PATIENT
  Age: 18 Year
  Sex: Female
  Weight: 83.0083 kg

DRUGS (2)
  1. DEPO-PROVERA [Suspect]
     Indication: CONTRACEPTION
     Dosage: 150 MG (150 MG, EVERY 3 MONTHS, LAST INJECTION), INTRAMUSCULAR/APPROX 2004-APPROX 2004
     Route: 030
  2. ATENOLOL [Concomitant]

REACTIONS (1)
  - OSTEOLYSIS [None]
